FAERS Safety Report 6367393-X (Version None)
Quarter: 2009Q3

REPORT INFORMATION
  Report Type: 
  Country: None (occurrence: None)
  Receive Date: 20090915
  Receipt Date: 20090904
  Transmission Date: 20100115
  Serious: Yes (Other)
  Sender: FDA-Public Use
  Company Number: 8051013

PATIENT
  Sex: Male

DRUGS (5)
  1. KEPPRA [Suspect]
     Indication: EPILEPSY
     Dosage: 2000 MG TRP
     Route: 064
  2. KEPPRA [Suspect]
     Indication: EPILEPSY
     Dosage: 2000 MG /D TRM
     Route: 063
  3. VITAMIN TAB [Concomitant]
  4. FOLIC ACID [Concomitant]
  5. IRON [Concomitant]

REACTIONS (3)
  - GROSS MOTOR DELAY [None]
  - MATERNAL DRUGS AFFECTING FOETUS [None]
  - TORTICOLLIS [None]
